FAERS Safety Report 23282531 (Version 1)
Quarter: 2023Q4

REPORT INFORMATION
  Report Type: Spontaneous
  Country: US (occurrence: US)
  Receive Date: 20231211
  Receipt Date: 20231211
  Transmission Date: 20240110
  Serious: Yes (Other)
  Sender: FDA-Public Use
  Company Number: US-PFIZER INC-202300410768

PATIENT
  Age: 31 Year
  Sex: Female

DRUGS (2)
  1. NALOXONE HCL [Suspect]
     Active Substance: NALOXONE HYDROCHLORIDE
     Indication: Borderline personality disorder
     Dosage: UNK
  2. BUPRENORPHINE [Concomitant]
     Active Substance: BUPRENORPHINE
     Indication: Borderline personality disorder
     Dosage: 16 MG, MONOPRODUCT (LOW DOSE)

REACTIONS (2)
  - Urticaria [Unknown]
  - Swollen tongue [Unknown]
